FAERS Safety Report 13430147 (Version 1)
Quarter: 2017Q2

REPORT INFORMATION
  Report Type: Spontaneous
  Country: FR (occurrence: FR)
  Receive Date: 20170412
  Receipt Date: 20170412
  Transmission Date: 20170830
  Serious: Yes (Hospitalization)
  Sender: FDA-Public Use
  Company Number: FR-009507513-1703FRA010809

PATIENT
  Age: 32 Year
  Sex: Female
  Weight: 100 kg

DRUGS (3)
  1. NEXPLANON [Suspect]
     Active Substance: ETONOGESTREL
     Indication: CONTRACEPTION
     Dosage: 1 IMPLANT IN THE LEFT ARM, UNK
     Route: 058
     Dates: start: 20170310, end: 20170321
  2. EUCREAS [Concomitant]
     Active Substance: METFORMIN HYDROCHLORIDE\VILDAGLIPTIN
     Dosage: IN MORNING AND EVENING
     Route: 048
  3. FOSINOPRIL SODIUM. [Concomitant]
     Active Substance: FOSINOPRIL SODIUM
     Dosage: HALF A DF IN MORNING
     Route: 048

REACTIONS (2)
  - Fistula [Recovering/Resolving]
  - Implant site abscess [Recovering/Resolving]

NARRATIVE: CASE EVENT DATE: 20170321
